FAERS Safety Report 8406183 (Version 7)
Quarter: 2014Q1

REPORT INFORMATION
  Report Type: Spontaneous
  Country: US (occurrence: US)
  Receive Date: 20120215
  Receipt Date: 20140307
  Transmission Date: 20141002
  Serious: Yes (Death, Other)
  Sender: FDA-Public Use
  Company Number: US-PFIZER INC-2012036956

PATIENT
  Age: 69 Year
  Sex: Male
  Weight: 96.15 kg

DRUGS (6)
  1. SUTENT [Suspect]
     Indication: METASTATIC RENAL CELL CARCINOMA
     Dosage: 50 MG, DAILY, 4 WEEKS ON, 2 OFF
     Route: 048
     Dates: start: 20120119, end: 20140224
  2. LEVOXYL [Concomitant]
     Dosage: UNK MG, UNK
  3. GLIPIZIDE [Concomitant]
     Indication: BLOOD GLUCOSE
     Dosage: 10 MG, AS NEEDED
  4. ENALAPRIL [Concomitant]
     Dosage: 10 MG, UNK
  5. AMLODIPINE [Concomitant]
     Dosage: 5 MG, UNK
  6. CARVEDILOL [Concomitant]
     Dosage: 6.2 MG, UNK

REACTIONS (16)
  - Disease progression [Fatal]
  - Metastatic renal cell carcinoma [Fatal]
  - Cardiac arrest [Fatal]
  - Enteritis infectious [Recovered/Resolved]
  - Diarrhoea [Unknown]
  - Hypertension [Unknown]
  - Blood glucose decreased [Unknown]
  - Oropharyngeal pain [Unknown]
  - Dysphagia [Unknown]
  - Pain [Recovered/Resolved]
  - Weight increased [Unknown]
  - Dysgeusia [Unknown]
  - Energy increased [Unknown]
  - Hair colour changes [Unknown]
  - Therapeutic response unexpected [Unknown]
  - Flatulence [Unknown]
